FAERS Safety Report 23786755 (Version 2)
Quarter: 2024Q2

REPORT INFORMATION
  Report Type: Spontaneous
  Country: AT (occurrence: AT)
  Receive Date: 20240426
  Receipt Date: 20240501
  Transmission Date: 20240716
  Serious: Yes (Hospitalization, Other)
  Sender: FDA-Public Use
  Company Number: AT-ABBVIE-5732090

PATIENT
  Age: 59 Year
  Sex: Female

DRUGS (3)
  1. RINVOQ [Suspect]
     Active Substance: UPADACITINIB
     Indication: Crohn^s disease
     Route: 048
     Dates: start: 202304, end: 202309
  2. ACETAMINOPHEN [Concomitant]
     Active Substance: ACETAMINOPHEN
     Indication: Analgesic therapy
  3. ONDANSETRON HYDROCHLORIDE [Concomitant]
     Active Substance: ONDANSETRON HYDROCHLORIDE
     Indication: Nausea

REACTIONS (7)
  - Renal failure [Recovered/Resolved]
  - Inflammatory marker increased [Recovered/Resolved]
  - Headache [Unknown]
  - Dehydration [Unknown]
  - Nausea [Unknown]
  - Renal function test abnormal [Recovered/Resolved]
  - Fatigue [Unknown]

NARRATIVE: CASE EVENT DATE: 20230101
